FAERS Safety Report 16250025 (Version 1)
Quarter: 2019Q2

REPORT INFORMATION
  Report Type: Spontaneous
  Country: MX (occurrence: MX)
  Receive Date: 20190429
  Receipt Date: 20190429
  Transmission Date: 20190711
  Serious: Yes (Hospitalization, Other)
  Sender: FDA-Public Use
  Company Number: MX-GLAXOSMITHKLINE-MX2019GSK075494

PATIENT
  Age: 11 Year
  Sex: Male

DRUGS (2)
  1. VALPROIC ACID. [Concomitant]
     Active Substance: VALPROIC ACID
     Indication: PETIT MAL EPILEPSY
     Dosage: UNK
  2. LAMOTRIGINE. [Suspect]
     Active Substance: LAMOTRIGINE
     Indication: PETIT MAL EPILEPSY
     Dosage: UNK

REACTIONS (16)
  - Pseudomonas infection [Recovered/Resolved]
  - Photophobia [Unknown]
  - Eye disorder [Recovered/Resolved]
  - Cheilitis [Recovered/Resolved]
  - Rash maculo-papular [Recovered/Resolved]
  - Skin exfoliation [Recovered/Resolved]
  - Stevens-Johnson syndrome [Recovered/Resolved]
  - Skin lesion [Recovered/Resolved]
  - Rash erythematous [Recovered/Resolved]
  - Odynophagia [Recovered/Resolved]
  - Mouth ulceration [Recovered/Resolved]
  - Dysphagia [Recovered/Resolved]
  - Conjunctival hyperaemia [Unknown]
  - Pyrexia [Recovered/Resolved]
  - Plicated tongue [Recovered/Resolved]
  - Speech disorder [Recovered/Resolved]
